FAERS Safety Report 17490073 (Version 1)
Quarter: 2020Q1

REPORT INFORMATION
  Report Type: Spontaneous
  Country: US (occurrence: US)
  Receive Date: 20200303
  Receipt Date: 20200303
  Transmission Date: 20200409
  Serious: No
  Sender: FDA-Public Use
  Company Number: US-AKORN PHARMACEUTICALS-2019AKN01650

PATIENT
  Age: 19 Year
  Sex: Male

DRUGS (12)
  1. TRETINOIN. [Concomitant]
     Active Substance: TRETINOIN
     Dosage: UNK, 2X/DAY
     Dates: start: 20190302
  2. CLINDAMYCIN. [Concomitant]
     Active Substance: CLINDAMYCIN
     Dosage: UNK
     Dates: start: 20171227, end: 20180728
  3. ISOTRETINOIN (AMNEAL) [Suspect]
     Active Substance: ISOTRETINOIN
     Indication: ACNE CYSTIC
  4. BENZOYL PEROXIDE. [Concomitant]
     Active Substance: BENZOYL PEROXIDE
     Dosage: UNK
     Dates: start: 2017, end: 2019
  5. MYORISAN [Suspect]
     Active Substance: ISOTRETINOIN
     Dosage: 40 MG, 2X/DAY ON EVEN DAYS; THREE TIMES DAILY ON ODD DAYS
     Dates: start: 20190518, end: 20190708
  6. TRETINOIN. [Concomitant]
     Active Substance: TRETINOIN
     Dosage: UNK, 2X/DAY
     Dates: start: 20181222, end: 20190103
  7. ISOTRETINOIN (AMNEAL) [Suspect]
     Active Substance: ISOTRETINOIN
     Indication: ACNE
     Dosage: 40 MG, 2X/DAY
     Dates: start: 20180515
  8. BACTRIM [Concomitant]
     Active Substance: SULFAMETHOXAZOLE\TRIMETHOPRIM
     Dosage: 1 TABLETS, 2X/DAY
  9. MYORISAN [Suspect]
     Active Substance: ISOTRETINOIN
     Indication: ACNE CYSTIC
     Dosage: 40 MG, 3X/DAY FOR 1 MONTH
     Dates: start: 20190425, end: 20190517
  10. MYORISAN [Suspect]
     Active Substance: ISOTRETINOIN
     Dosage: 40 MG, 3X/DAY ON ODD DAYS; 2 TIMES DAILY ON EVEN DAYS
     Dates: start: 20190518, end: 20190708
  11. MYORISAN [Suspect]
     Active Substance: ISOTRETINOIN
     Indication: ACNE
     Dosage: 40 MG, 2X/DAY FOR 13 MONTHS
     Dates: start: 20171227, end: 20190424
  12. CLINDAMYCIN. [Concomitant]
     Active Substance: CLINDAMYCIN
     Dosage: UNK
     Dates: start: 20180728, end: 2019

REACTIONS (3)
  - Off label use [Recovered/Resolved]
  - Vision blurred [Recovered/Resolved]
  - Corneal disorder [Recovered/Resolved]

NARRATIVE: CASE EVENT DATE: 20190708
